FAERS Safety Report 7671412-8 (Version None)
Quarter: 2011Q3

REPORT INFORMATION
  Report Type: 
  Country: None (occurrence: None)
  Receive Date: 20110809
  Receipt Date: 20110726
  Transmission Date: 20111222
  Serious: Yes (Other)
  Sender: FDA-Public Use
  Company Number: US-ELI_LILLY_AND_COMPANY-US201107008085

PATIENT
  Sex: Female

DRUGS (1)
  1. CYMBALTA [Suspect]
     Indication: HERPES ZOSTER
     Dosage: 60 MG, QD

REACTIONS (7)
  - FISTULA [None]
  - PRURITUS [None]
  - ABNORMAL FAECES [None]
  - RENAL DISORDER [None]
  - HALLUCINATION, AUDITORY [None]
  - OFF LABEL USE [None]
  - DIVERTICULITIS [None]
